FAERS Safety Report 21634103 (Version 1)
Quarter: 2022Q4

REPORT INFORMATION
  Report Type: Spontaneous
  Country: JP (occurrence: JP)
  Receive Date: 20221123
  Receipt Date: 20221123
  Transmission Date: 20230113
  Serious: Yes (Hospitalization)
  Sender: FDA-Public Use
  Company Number: JP-Eisai-202210909_LEN_P_1

PATIENT
  Age: 78 Year
  Sex: Female

DRUGS (4)
  1. LENVATINIB [Suspect]
     Active Substance: LENVATINIB
     Indication: Thyroid cancer
     Route: 048
  2. LENVATINIB [Suspect]
     Active Substance: LENVATINIB
     Dosage: DOSE AND FREQUENCY UNKNOWN (TAPERED)
     Route: 048
  3. LENVATINIB [Suspect]
     Active Substance: LENVATINIB
     Route: 048
  4. LENVATINIB [Suspect]
     Active Substance: LENVATINIB
     Dosage: 5 DAYS ON AND 2 DAYS OFF
     Route: 048

REACTIONS (4)
  - Decreased appetite [Recovering/Resolving]
  - Weight decreased [Unknown]
  - Hypertension [Unknown]
  - Hypothyroidism [Unknown]
